FAERS Safety Report 25649602 (Version 1)
Quarter: 2025Q3

REPORT INFORMATION
  Report Type: Report from Study
  Country: US (occurrence: US)
  Receive Date: 20250806
  Receipt Date: 20250806
  Transmission Date: 20251021
  Serious: Yes (Hospitalization)
  Sender: EISAI
  Company Number: US-Eisai-EC-2025-194230

PATIENT
  Age: 66 Year
  Sex: Male

DRUGS (3)
  1. LENVIMA [Suspect]
     Active Substance: LENVATINIB
     Indication: Renal cancer
     Dates: start: 20250621, end: 202507
  2. NIFEDIPINE [Suspect]
     Active Substance: NIFEDIPINE
     Indication: Hypertension
  3. INLYTA [Concomitant]
     Active Substance: AXITINIB
     Indication: Renal cancer

REACTIONS (5)
  - Blood calcium decreased [Unknown]
  - Peripheral swelling [Unknown]
  - Blood pressure increased [Unknown]
  - Malignant neoplasm progression [Unknown]
  - Diarrhoea [Recovering/Resolving]

NARRATIVE: CASE EVENT DATE: 20250101
